FAERS Safety Report 5258268-8 (Version None)
Quarter: 2007Q1

REPORT INFORMATION
  Report Type: 
  Country: None (occurrence: None)
  Receive Date: 20070305
  Receipt Date: 20070220
  Transmission Date: 20070707
  Serious: Yes (Hospitalization)
  Sender: FDA-Public Use
  Company Number: 2007RR-05925

PATIENT
  Age: 58 Year
  Sex: Female

DRUGS (4)
  1. LOPERAMIDE HYDROCHLORIDE [Suspect]
     Dosage: 2 MG, QID, UNK
  2. RIFAXIMIN [Concomitant]
  3. METRONIDAZOLE [Concomitant]
  4. CEFUROXIME [Concomitant]

REACTIONS (1)
  - AMOEBIC COLITIS [None]
